FAERS Safety Report 13542258 (Version 1)
Quarter: 2017Q2

REPORT INFORMATION
  Report Type: Spontaneous
  Country: US (occurrence: US)
  Receive Date: 20170512
  Receipt Date: 20170512
  Transmission Date: 20170830
  Serious: Yes (Other)
  Sender: FDA-Public Use
  Company Number: US-ROCHE-693536

PATIENT
  Sex: Female
  Weight: 42.6 kg

DRUGS (1)
  1. AVASTIN [Suspect]
     Active Substance: BEVACIZUMAB
     Indication: NEOVASCULAR AGE-RELATED MACULAR DEGENERATION
     Dosage: ROUTE: IVT, 4 INTRAOCULAR INJECTIONS.
     Route: 050
     Dates: start: 200910, end: 201001

REACTIONS (6)
  - Dyspepsia [Recovering/Resolving]
  - Rash macular [Unknown]
  - Hypersensitivity [Unknown]
  - Eye discharge [Unknown]
  - Chromaturia [Unknown]
  - Weight decreased [Unknown]
